FAERS Safety Report 6227404-9 (Version None)
Quarter: 2009Q2

REPORT INFORMATION
  Report Type: 
  Country: None (occurrence: None)
  Receive Date: 20090610
  Receipt Date: 20090610
  Transmission Date: 20091009
  Serious: Yes (Other)
  Sender: FDA-Public Use
  Company Number: None

PATIENT
  Age: 18 Year
  Sex: Female
  Weight: 63.5036 kg

DRUGS (1)
  1. MONISTAT [Suspect]
     Indication: FUNGAL INFECTION
     Dosage: 1 1 VAG
     Route: 067
     Dates: start: 20090608, end: 20090608

REACTIONS (5)
  - BURNING SENSATION [None]
  - DYSURIA [None]
  - GAIT DISTURBANCE [None]
  - PAIN [None]
  - VAGINAL SWELLING [None]
